FAERS Safety Report 11139860 (Version 2)
Quarter: 2015Q3

REPORT INFORMATION
  Report Type: Report from Study
  Country: CA (occurrence: CA)
  Receive Date: 20150527
  Receipt Date: 20150709
  Transmission Date: 20151125
  Serious: Yes (Other)
  Sender: FDA-Public Use
  Company Number: CA-SA-2015SA001230

PATIENT
  Age: 48 Year
  Sex: Female
  Weight: 43 kg

DRUGS (4)
  1. ELAVIL [Concomitant]
     Active Substance: AMITRIPTYLINE HYDROCHLORIDE
     Indication: PAIN
     Route: 048
  2. AUBAGIO [Suspect]
     Active Substance: TERIFLUNOMIDE
     Indication: RELAPSING-REMITTING MULTIPLE SCLEROSIS
     Route: 048
     Dates: start: 20140607, end: 20150107
  3. AMANTADINE [Concomitant]
     Active Substance: AMANTADINE
     Indication: COGNITIVE DISORDER
     Route: 048
  4. VITAMIN D [Concomitant]
     Active Substance: CHOLECALCIFEROL
     Indication: SUPPLEMENTATION THERAPY
     Route: 048

REACTIONS (13)
  - Multiple sclerosis relapse [Not Recovered/Not Resolved]
  - Pain in extremity [Recovering/Resolving]
  - Weight decreased [Not Recovered/Not Resolved]
  - Diplopia [Unknown]
  - Dizziness [Unknown]
  - Back pain [Recovering/Resolving]
  - Colitis ulcerative [Unknown]
  - Leukopenia [Not Recovered/Not Resolved]
  - Balance disorder [Unknown]
  - Dehydration [Unknown]
  - Malaise [Unknown]
  - Diarrhoea [Recovering/Resolving]
  - Abdominal discomfort [Unknown]

NARRATIVE: CASE EVENT DATE: 20141101
